FAERS Safety Report 4536882-2 (Version None)
Quarter: 2004Q4

REPORT INFORMATION
  Report Type: 
  Country: None (occurrence: None)
  Receive Date: 20041223
  Receipt Date: 20041215
  Transmission Date: 20050328
  Serious: Yes (Hospitalization)
  Sender: FDA-Public Use
  Company Number: FR-GLAXOSMITHKLINE-B0362185A

PATIENT
  Age: 19 Year
  Sex: Female
  Weight: 62 kg

DRUGS (2)
  1. LAMICTAL [Suspect]
     Route: 048
     Dates: start: 20041013, end: 20041111
  2. LEVONORGESTREL [Concomitant]
     Indication: CONTRACEPTION
     Route: 048
     Dates: start: 20031101

REACTIONS (12)
  - CHOLESTASIS [None]
  - CYTOLYTIC HEPATITIS [None]
  - DIPLOPIA [None]
  - EOSINOPHIL COUNT INCREASED [None]
  - HYPERSENSITIVITY [None]
  - LYMPHADENOPATHY [None]
  - MACULAR OEDEMA [None]
  - PYREXIA [None]
  - RASH MACULO-PAPULAR [None]
  - RENAL FAILURE ACUTE [None]
  - UVEITIS [None]
  - VISUAL ACUITY REDUCED [None]
